FAERS Safety Report 7406830-6 (Version None)
Quarter: 2011Q2

REPORT INFORMATION
  Report Type: 
  Country: None (occurrence: None)
  Receive Date: 20110406
  Receipt Date: 20110406
  Transmission Date: 20111010
  Serious: Yes (Other)
  Sender: FDA-Public Use
  Company Number: None

PATIENT
  Sex: Male
  Weight: 84.1 kg

DRUGS (1)
  1. NAPROXEN [Suspect]
     Indication: HEADACHE
     Dosage: 500MG 1 PILL ORAL
     Route: 048
     Dates: start: 20110322

REACTIONS (1)
  - STEVENS-JOHNSON SYNDROME [None]
